FAERS Safety Report 9226112 (Version 2)
Quarter: 2013Q2

REPORT INFORMATION
  Report Type: Spontaneous
  Country: US (occurrence: US)
  Receive Date: 20130411
  Receipt Date: 20130502
  Transmission Date: 20140414
  Serious: Yes (Other)
  Sender: FDA-Public Use
  Company Number: US-GLAXOSMITHKLINE-A1018894A

PATIENT
  Age: 30 Year
  Sex: Female
  Weight: 86.4 kg

DRUGS (13)
  1. BENLYSTA [Suspect]
     Indication: SYSTEMIC LUPUS ERYTHEMATOSUS
     Dosage: 855MG EVERY TWO WEEKS
     Route: 042
     Dates: start: 201207
  2. FISH OIL [Concomitant]
  3. VITAMIN D3 [Concomitant]
  4. ZOFRAN [Concomitant]
  5. AMBIEN [Concomitant]
  6. ZOLOFT [Concomitant]
  7. PLAQUENIL [Concomitant]
  8. CELEBREX [Concomitant]
  9. PROMETHAZINE [Concomitant]
  10. PROTON PUMP INHIBITOR [Concomitant]
  11. VICODIN [Concomitant]
  12. SOLUMEDROL [Concomitant]
  13. TORADOL [Concomitant]

REACTIONS (2)
  - Bone pain [Not Recovered/Not Resolved]
  - Pain in extremity [Not Recovered/Not Resolved]
